FAERS Safety Report 23461225 (Version 5)
Quarter: 2024Q1

REPORT INFORMATION
  Report Type: Spontaneous
  Country: DO (occurrence: DO)
  Receive Date: 20240131
  Receipt Date: 20240306
  Transmission Date: 20240410
  Serious: No
  Sender: FDA-Public Use
  Company Number: DO-PFIZER INC-PV202400003864

PATIENT
  Age: 14 Year
  Sex: Male

DRUGS (1)
  1. GENOTROPIN [Suspect]
     Active Substance: SOMATROPIN
     Dosage: 1.7 MG, 1X/DAY
     Dates: start: 2023

REACTIONS (6)
  - Device use issue [Unknown]
  - Device use error [Unknown]
  - Drug dose omission by device [Unknown]
  - Device occlusion [Unknown]
  - Device information output issue [Unknown]
  - Device leakage [Unknown]

NARRATIVE: CASE EVENT DATE: 20240108
